FAERS Safety Report 10166012 (Version 1)
Quarter: 2014Q2

REPORT INFORMATION
  Report Type: Spontaneous
  Country: US (occurrence: US)
  Receive Date: 20140511
  Receipt Date: 20140511
  Transmission Date: 20141212
  Serious: No
  Sender: FDA-Public Use
  Company Number: US-009507513-2012SP036529

PATIENT
  Sex: Female

DRUGS (1)
  1. CLARITIN [Suspect]
     Indication: RASH
     Dosage: 10 MG, QD
     Route: 048
     Dates: start: 20120619

REACTIONS (3)
  - Therapeutic response changed [Unknown]
  - Expired product administered [Unknown]
  - Off label use [Unknown]
